FAERS Safety Report 7587340-2 (Version None)
Quarter: 2011Q3

REPORT INFORMATION
  Report Type: 
  Country: None (occurrence: None)
  Receive Date: 20110701
  Receipt Date: 20110621
  Transmission Date: 20111222
  Serious: Yes (Hospitalization, Other)
  Sender: FDA-Public Use
  Company Number: US-AMGEN-USACT2011031491

PATIENT
  Age: 31 Year
  Sex: Female

DRUGS (6)
  1. CYCLOPHOSPHAMIDE [Concomitant]
     Indication: BREAST CANCER
     Dosage: UNK
     Route: 042
     Dates: start: 20100325
  2. PEGFILGRASTIM [Suspect]
     Indication: BREAST CANCER
     Dosage: 6 UNK, UNK
     Route: 058
     Dates: start: 20100326
  3. BEVACIZUMAB [Concomitant]
     Indication: BREAST CANCER
     Dosage: UNK
     Dates: start: 20100325
  4. DOXORUBICIN HCL [Concomitant]
     Indication: BREAST CANCER
     Dosage: UNK
     Route: 042
     Dates: start: 20100325
  5. PACLITAXEL [Concomitant]
     Indication: BREAST CANCER
     Dosage: UNK
     Route: 042
     Dates: start: 20100520
  6. FILGRASTIM [Suspect]
     Indication: BREAST CANCER
     Dosage: 5 A?G/KG, UNK
     Route: 058
     Dates: start: 20100326

REACTIONS (2)
  - PNEUMONITIS [None]
  - LEFT VENTRICULAR DYSFUNCTION [None]
